FAERS Safety Report 24564773 (Version 3)
Quarter: 2024Q4

REPORT INFORMATION
  Report Type: Spontaneous
  Country: NL (occurrence: NL)
  Receive Date: 20241030
  Receipt Date: 20241230
  Transmission Date: 20250115
  Serious: Yes (Death, Life-Threatening, Hospitalization, Other)
  Sender: MERCK
  Company Number: NL-009507513-2410NLD011924

PATIENT
  Age: 49 Year
  Sex: Male
  Weight: 121 kg

DRUGS (10)
  1. PEMBROLIZUMAB [Suspect]
     Active Substance: PEMBROLIZUMAB
     Indication: Transitional cell carcinoma
     Dosage: 150 MILLIGRAM, Q3W
     Route: 042
     Dates: start: 20240705, end: 20240903
  2. PEMBROLIZUMAB [Suspect]
     Active Substance: PEMBROLIZUMAB
     Dosage: 150 MILLIGRAM, Q3W
     Route: 042
     Dates: start: 20240705, end: 20240903
  3. PEMBROLIZUMAB [Suspect]
     Active Substance: PEMBROLIZUMAB
     Dosage: 150 MILLIGRAM, Q3W
     Route: 042
     Dates: start: 20240705, end: 20240903
  4. CEFUROXIME [Concomitant]
     Active Substance: CEFUROXIME
     Indication: Urinary tract infection
     Dosage: 4500 MILLIGRAM
     Route: 042
     Dates: start: 20240817, end: 20240822
  5. NADROPARIN [Concomitant]
     Active Substance: NADROPARIN
     Indication: Prophylaxis
     Dosage: 2850 IE
     Route: 058
     Dates: start: 20240820, end: 20240820
  6. NADROPARIN [Concomitant]
     Active Substance: NADROPARIN
     Dosage: 7600 IE
     Route: 058
     Dates: start: 20240828, end: 20240903
  7. ACETAMINOPHEN [Concomitant]
     Active Substance: ACETAMINOPHEN
     Indication: Pain
     Dosage: 4 GRAM, PRN
     Route: 048
     Dates: start: 20240828, end: 20240828
  8. TEMAZEPAM [Concomitant]
     Active Substance: TEMAZEPAM
     Indication: Insomnia
     Dosage: 20 MG, PRN
     Route: 048
     Dates: start: 20240823, end: 20240905
  9. APIXABAN [Concomitant]
     Active Substance: APIXABAN
     Indication: Pulmonary embolism
     Dosage: 5 MILLIGRAM, BID
     Route: 048
     Dates: start: 20240503, end: 20240817
  10. APIXABAN [Concomitant]
     Active Substance: APIXABAN
     Dosage: 2.5 MILLIGRAM, BID
     Route: 048
     Dates: start: 20240821, end: 20240905

REACTIONS (10)
  - Autoimmune hepatitis [Fatal]
  - Diverticulum intestinal haemorrhagic [Fatal]
  - Shock [Fatal]
  - Urinary tract infection [Unknown]
  - Diverticulum intestinal haemorrhagic [Unknown]
  - Shock haemorrhagic [Unknown]
  - Urinary tract infection [Unknown]
  - Immune-mediated hepatitis [Recovering/Resolving]
  - Urosepsis [Unknown]
  - Incorrect dose administered [Unknown]

NARRATIVE: CASE EVENT DATE: 20240101
